FAERS Safety Report 18036929 (Version 2)
Quarter: 2020Q3

REPORT INFORMATION
  Report Type: Spontaneous
  Country: CN (occurrence: CN)
  Receive Date: 20200717
  Receipt Date: 20200722
  Transmission Date: 20201103
  Serious: Yes (Other)
  Sender: FDA-Public Use
  Company Number: CN-009507513-2007CHN004935

PATIENT
  Age: 49 Year
  Sex: Male
  Weight: 60 kg

DRUGS (2)
  1. TIENAM [Suspect]
     Active Substance: CILASTATIN SODIUM\IMIPENEM
     Indication: INFECTION
     Dosage: 1 GRAM, BID
     Dates: start: 20200611, end: 20200620
  2. CEFOPERAZONE SODIUM (+) SULBACTAM SODIUM [Concomitant]
     Active Substance: CEFOPERAZONE SODIUM\SULBACTAM SODIUM
     Indication: INFECTION
     Dosage: 3 GRAM, BID
     Dates: start: 20200611

REACTIONS (9)
  - Pulse abnormal [Unknown]
  - Epilepsy [Recovering/Resolving]
  - Respiratory arrest [Recovered/Resolved]
  - Blood pressure abnormal [Unknown]
  - Respiration abnormal [Unknown]
  - Oxygen saturation abnormal [Unknown]
  - Loss of consciousness [Unknown]
  - Cardiac arrest [Recovered/Resolved]
  - Productive cough [Unknown]

NARRATIVE: CASE EVENT DATE: 20200620
